FAERS Safety Report 17080377 (Version 1)
Quarter: 2019Q4

REPORT INFORMATION
  Report Type: Spontaneous
  Country: IN (occurrence: IN)
  Receive Date: 20191127
  Receipt Date: 20191127
  Transmission Date: 20200122
  Serious: Yes (Other)
  Sender: FDA-Public Use
  Company Number: IN-ROCHE-2483251

PATIENT
  Sex: Female

DRUGS (6)
  1. LAPATINIB [Suspect]
     Active Substance: LAPATINIB
     Indication: HER-2 POSITIVE BREAST CANCER
     Dosage: 24 CYCLES
     Route: 065
  2. HERCLON [Suspect]
     Active Substance: TRASTUZUMAB
     Indication: HER-2 POSITIVE BREAST CANCER
     Dosage: 18 CYCLES
     Route: 042
  3. TAXOL [Suspect]
     Active Substance: PACLITAXEL
     Dosage: 8-9 CYCLES
     Route: 065
  4. TAXOL [Suspect]
     Active Substance: PACLITAXEL
     Indication: PRODUCT USED FOR UNKNOWN INDICATION
     Dosage: 18 CYCLES
     Route: 065
  5. HERCLON [Suspect]
     Active Substance: TRASTUZUMAB
     Dosage: 8-9 CYCLES
     Route: 042
  6. CAPECITABINE. [Suspect]
     Active Substance: CAPECITABINE
     Indication: HER-2 POSITIVE BREAST CANCER
     Dosage: 24 CYCLES
     Route: 048

REACTIONS (2)
  - Metastases to lung [Unknown]
  - Metastases to central nervous system [Unknown]

NARRATIVE: CASE EVENT DATE: 2015
